FAERS Safety Report 6309185-3 (Version None)
Quarter: 2009Q3

REPORT INFORMATION
  Report Type: 
  Country: None (occurrence: None)
  Receive Date: 20090814
  Receipt Date: 20090701
  Transmission Date: 20100115
  Serious: No
  Sender: FDA-Public Use
  Company Number: A0795003A

PATIENT
  Age: 86 Year
  Sex: Female

DRUGS (5)
  1. COREG CR [Suspect]
     Indication: LEFT VENTRICULAR DYSFUNCTION
     Dosage: 20MG PER DAY
     Route: 048
     Dates: start: 20090101
  2. RAMIPRIL [Concomitant]
  3. PLAVIX [Concomitant]
  4. ASPIRIN [Concomitant]
  5. CARVEDILOL [Concomitant]
     Indication: LEFT VENTRICULAR DYSFUNCTION
     Route: 065

REACTIONS (2)
  - DIZZINESS [None]
  - FATIGUE [None]
